FAERS Safety Report 26142015 (Version 1)
Quarter: 2025Q4

REPORT INFORMATION
  Report Type: Spontaneous
  Country: US (occurrence: None)
  Receive Date: 20251210
  Receipt Date: 20251210
  Transmission Date: 20260118
  Serious: Yes (Other)
  Sender: FDA-CTU
  Company Number: None

PATIENT
  Age: 48 Year
  Sex: Female
  Weight: 63.45 kg

DRUGS (1)
  1. TIRZEPATIDE [Suspect]
     Active Substance: TIRZEPATIDE
     Indication: Overweight
     Dosage: OTHER FREQUENCY : WEEKLY;
     Route: 058
     Dates: start: 20250715, end: 20251111

REACTIONS (2)
  - Nausea [None]
  - Hiatus hernia [None]

NARRATIVE: CASE EVENT DATE: 20251109
